FAERS Safety Report 9697385 (Version 1)
Quarter: 2013Q4

REPORT INFORMATION
  Report Type: Spontaneous
  Country: US (occurrence: None)
  Receive Date: 20131119
  Receipt Date: 20131119
  Transmission Date: 20140711
  Serious: Yes (Hospitalization)
  Sender: FDA-Public Use
  Company Number: None

PATIENT
  Age: 35 Year
  Sex: Female
  Weight: 69.8 kg

DRUGS (1)
  1. DESMOPRESSIN [Suspect]
     Indication: VON WILLEBRAND^S DISEASE
     Dosage: 20 MCG IV
     Route: 042
     Dates: start: 20130813, end: 20130815

REACTIONS (2)
  - Blood sodium decreased [None]
  - Nausea [None]
